FAERS Safety Report 6242066-2 (Version None)
Quarter: 2009Q2

REPORT INFORMATION
  Report Type: 
  Country: None (occurrence: None)
  Receive Date: 20090622
  Receipt Date: 20090611
  Transmission Date: 20091009
  Serious: Yes (Other)
  Sender: FDA-Public Use
  Company Number: GXKR2009GB06804

PATIENT

DRUGS (2)
  1. DICLOFENAC (NGX) (DICLOFENAC) UNKNOWN [Suspect]
     Indication: PAIN
  2. BLOOD COAGULATION DRUGS (BLOOD COAGULATION DRUGS) [Suspect]
     Indication: KNEE ARTHROPLASTY

REACTIONS (2)
  - HAEMARTHROSIS [None]
  - POST PROCEDURAL SWELLING [None]
